FAERS Safety Report 21608605 (Version 2)
Quarter: 2023Q1

REPORT INFORMATION
  Report Type: Spontaneous
  Country: DE (occurrence: DE)
  Receive Date: 20221117
  Receipt Date: 20230120
  Transmission Date: 20230418
  Serious: Yes (Life-Threatening, Hospitalization, Other)
  Sender: FDA-Public Use
  Company Number: DE-SANOFI-01364499

PATIENT
  Age: 18 Year
  Sex: Female
  Weight: 44.3 kg

DRUGS (6)
  1. DUPIXENT [Suspect]
     Active Substance: DUPILUMAB
     Indication: Asthma
     Dosage: UNK
     Dates: start: 20220915, end: 20220919
  2. GLYCOPYRROLATE\INDACATEROL\MOMETASONE FUROATE [Concomitant]
     Active Substance: GLYCOPYRROLATE\INDACATEROL\MOMETASONE FUROATE
     Indication: Asthma
     Dosage: UNK
     Route: 050
  3. MONTELUKAST [Concomitant]
     Active Substance: MONTELUKAST SODIUM
     Indication: Asthma
     Dosage: 10 MG, QD
     Route: 048
  4. MOMETASONE [Concomitant]
     Active Substance: MOMETASONE
     Indication: Rhinitis allergic
     Dosage: 50 MG, Q12H
     Route: 045
  5. DESLORATADINE [Concomitant]
     Active Substance: DESLORATADINE
     Indication: Rhinitis allergic
     Dosage: 10 MG, PRN
     Route: 048
  6. LIVOCAB [Concomitant]
     Indication: Rhinitis allergic
     Dosage: 0.05 %, PRN
     Route: 065

REACTIONS (7)
  - Dyspnoea [Recovered/Resolved]
  - Rash [Recovered/Resolved]
  - Cough [Recovered/Resolved]
  - Paraesthesia [Recovered/Resolved]
  - Erythema [Unknown]
  - Swelling [Unknown]
  - Hyperhidrosis [Unknown]

NARRATIVE: CASE EVENT DATE: 20220915
